FAERS Safety Report 10229710 (Version 2)
Quarter: 2014Q2

REPORT INFORMATION
  Report Type: Spontaneous
  Country: DE (occurrence: DE)
  Receive Date: 20140611
  Receipt Date: 20140625
  Transmission Date: 20141212
  Serious: Yes (Hospitalization)
  Sender: FDA-Public Use
  Company Number: DE-NOVOPROD-412401

PATIENT
  Sex: Female
  Weight: 70 kg

DRUGS (5)
  1. VICTOZA [Suspect]
     Indication: TYPE 2 DIABETES MELLITUS
     Dosage: UNK
     Route: 058
     Dates: start: 201210, end: 201403
  2. MOXONIDIN [Concomitant]
     Dosage: UNK
     Route: 065
  3. EXFORGE HCT [Concomitant]
     Route: 065
  4. L-THYROXIN [Concomitant]
     Dosage: UNK
     Route: 065
  5. TORASEMID [Concomitant]
     Dosage: UNK
     Route: 065

REACTIONS (4)
  - Weight decreased [Recovered/Resolved]
  - Abdominal pain upper [Recovering/Resolving]
  - Diarrhoea [Recovering/Resolving]
  - Nausea [Recovering/Resolving]
